FAERS Safety Report 6727613-6 (Version None)
Quarter: 2010Q2

REPORT INFORMATION
  Report Type: 
  Country: None (occurrence: None)
  Receive Date: 20100517
  Receipt Date: 20100517
  Transmission Date: 20101027
  Serious: No
  Sender: FDA-Public Use
  Company Number: None

PATIENT
  Age: 7 Month
  Weight: 8.1647 kg

DRUGS (2)
  1. INFANTS TYLENOL LIQUID SUSPENSIO [Suspect]
     Indication: PRODUCT QUALITY ISSUE
     Dosage: 1.25 ML AS NEEDED PO
     Route: 048
     Dates: start: 20100101, end: 20100515
  2. INFANTS MORTIN [Suspect]
     Indication: PRODUCT QUALITY ISSUE
     Dosage: .8ML AS NEEDED PO
     Route: 048
     Dates: start: 20100301, end: 20100515

REACTIONS (3)
  - DIARRHOEA [None]
  - EAR INFECTION [None]
  - NASOPHARYNGITIS [None]
